FAERS Safety Report 8481994-4 (Version None)
Quarter: 2012Q3

REPORT INFORMATION
  Report Type: 
  Country: None (occurrence: None)
  Receive Date: 20120702
  Receipt Date: 20120621
  Transmission Date: 20120928
  Serious: Yes (Hospitalization, Other)
  Sender: FDA-Public Use
  Company Number: PHHY2011DE75546

PATIENT
  Age: 46 Year
  Sex: Female
  Weight: 71 kg

DRUGS (5)
  1. PARACETAMOL [Concomitant]
     Indication: MIGRAINE
     Dosage: 1000 MG, PRN
     Route: 048
  2. GILENYA [Suspect]
     Indication: MULTIPLE SCLEROSIS
     Dosage: 0.5 MG, DAILY
     Route: 048
     Dates: start: 20101013, end: 20110816
  3. METOCLOPRAMIDE [Concomitant]
     Indication: MIGRAINE
     Dosage: 10 MG, PRN
     Route: 048
     Dates: start: 20110818
  4. METOPROLOL SUCCINATE [Concomitant]
     Indication: MIGRAINE PROPHYLAXIS
     Dosage: 50 MG, QD
  5. SUMATRIPTAN [Concomitant]
     Indication: MIGRAINE
     Dosage: 50 MG, PRN
     Route: 048
     Dates: start: 20110818

REACTIONS (3)
  - OSTEOCHONDROMA [None]
  - PAIN IN EXTREMITY [None]
  - ENCHONDROMA [None]
